FAERS Safety Report 8402291-9 (Version None)
Quarter: 2012Q2

REPORT INFORMATION
  Report Type: 
  Country: None (occurrence: None)
  Receive Date: 20120601
  Receipt Date: 20120521
  Transmission Date: 20120825
  Serious: Yes (Hospitalization, Other)
  Sender: FDA-Public Use
  Company Number: AU-BRISTOL-MYERS SQUIBB COMPANY-16640120

PATIENT
  Age: 72 Year
  Sex: Female

DRUGS (1)
  1. ORENCIA [Suspect]
     Route: 042
     Dates: start: 20080825

REACTIONS (2)
  - PNEUMOTHORAX [None]
  - PNEUMONIA [None]
